FAERS Safety Report 11198941 (Version 25)
Quarter: 2020Q4

REPORT INFORMATION
  Report Type: Report from Study
  Country: AU (occurrence: AU)
  Receive Date: 20150618
  Receipt Date: 20201211
  Transmission Date: 20210113
  Serious: Yes (Hospitalization, Other)
  Sender: FDA-Public Use
  Company Number: AU-SA-2015SA085176

PATIENT

DRUGS (12)
  1. AGALSIDASE BETA [Suspect]
     Active Substance: AGALSIDASE BETA
     Dosage: 90 MG IN 250ML NACL OVER 2-3 HOURS, QOD
     Route: 041
     Dates: start: 2015
  2. AGALSIDASE BETA [Suspect]
     Active Substance: AGALSIDASE BETA
     Dosage: 1 MG/KG,QOW
     Route: 041
     Dates: start: 20060615
  3. AGALSIDASE BETA [Suspect]
     Active Substance: AGALSIDASE BETA
     Dosage: 90 MG IN 250ML NACL OVER 3 HOURS, QOD
     Route: 041
  4. AGALSIDASE BETA [Suspect]
     Active Substance: AGALSIDASE BETA
     Dosage: 90 MG 250ML NACL OVER 2-3 HOURS
     Route: 041
     Dates: start: 2005
  5. AGALSIDASE BETA [Suspect]
     Active Substance: AGALSIDASE BETA
     Dosage: 1 MG/KG,QOW
     Route: 041
     Dates: start: 20170217, end: 20171027
  6. AGALSIDASE BETA [Suspect]
     Active Substance: AGALSIDASE BETA
     Dosage: 1 MG/KG,QOW
     Route: 041
     Dates: start: 20160527
  7. PANADOL [Concomitant]
     Active Substance: ACETAMINOPHEN
     Dosage: UNK UNK,UNK
     Route: 065
  8. AGALSIDASE BETA [Suspect]
     Active Substance: AGALSIDASE BETA
     Dosage: 1 MG/KG,QOW
     Route: 041
     Dates: start: 20060615
  9. AGALSIDASE BETA [Suspect]
     Active Substance: AGALSIDASE BETA
     Dosage: 1 MG/KG,QOW
     Route: 041
     Dates: start: 20170615
  10. AGALSIDASE BETA [Suspect]
     Active Substance: AGALSIDASE BETA
     Indication: FABRY^S DISEASE
     Dosage: 90 MG, QOW
     Route: 041
     Dates: start: 2002
  11. AGALSIDASE BETA [Suspect]
     Active Substance: AGALSIDASE BETA
     Dosage: 0.98 MG/KG, QOW
     Route: 041
     Dates: start: 20020618
  12. SOTALOL. [Concomitant]
     Active Substance: SOTALOL
     Dosage: 80 MG,UNK
     Route: 065

REACTIONS (32)
  - End stage renal disease [Recovered/Resolved]
  - Wound complication [Not Recovered/Not Resolved]
  - Chest pain [Recovered/Resolved]
  - Malaise [Unknown]
  - Back pain [Not Recovered/Not Resolved]
  - Renal impairment [Not Recovered/Not Resolved]
  - Renal pain [Recovering/Resolving]
  - Abdominal pain [Not Recovered/Not Resolved]
  - Decubitus ulcer [Recovering/Resolving]
  - Fracture infection [Not Recovered/Not Resolved]
  - Tenderness [Recovered/Resolved]
  - Localised infection [Recovering/Resolving]
  - Pain in extremity [Not Recovered/Not Resolved]
  - Product use issue [Unknown]
  - Arrhythmia [Recovered/Resolved with Sequelae]
  - Joint dislocation [Not Recovered/Not Resolved]
  - Shoulder operation [Unknown]
  - Lethargy [Not Recovered/Not Resolved]
  - Drug ineffective [Unknown]
  - Oedema peripheral [Recovered/Resolved]
  - Blood creatinine increased [Unknown]
  - Nasopharyngitis [Recovering/Resolving]
  - Transient ischaemic attack [Unknown]
  - Abscess limb [Recovering/Resolving]
  - Renal impairment [Not Recovered/Not Resolved]
  - Diarrhoea [Not Recovered/Not Resolved]
  - Dysarthria [Not Recovered/Not Resolved]
  - Cerebrovascular accident [Not Recovered/Not Resolved]
  - Cellulitis [Recovered/Resolved]
  - Shoulder operation [Recovered/Resolved]
  - Memory impairment [Not Recovered/Not Resolved]
  - Skin ulcer [Recovering/Resolving]

NARRATIVE: CASE EVENT DATE: 20150603
